FAERS Safety Report 10396294 (Version 1)
Quarter: 2014Q1

REPORT INFORMATION
  Report Type: Spontaneous
  Country: US (occurrence: None)
  Receive Date: 20130130
  Receipt Date: 20130130
  Transmission Date: 20141002
  Serious: Yes (Other)
  Sender: FDA-Public Use
  Company Number: US201201007936

PATIENT
  Age: 48 Year
  Sex: Female

DRUGS (1)
  1. BYETTA (EXENATIDE) PEN, DISPOSABLE [Suspect]

REACTIONS (1)
  - Abdominal pain [None]
